FAERS Safety Report 7371127-X (Version None)
Quarter: 2011Q1

REPORT INFORMATION
  Report Type: 
  Country: None (occurrence: None)
  Receive Date: 20110324
  Receipt Date: 20100811
  Transmission Date: 20110831
  Serious: Yes (Other)
  Sender: FDA-Public Use
  Company Number: US-BAYER-201025704NA

PATIENT
  Sex: Female
  Weight: 113.64 kg

DRUGS (4)
  1. ROBAXIN [Concomitant]
  2. YAZ [Suspect]
     Route: 048
  3. OCELLA [Suspect]
     Route: 065
     Dates: start: 20070501, end: 20090808
  4. RELAFEN [Concomitant]

REACTIONS (2)
  - DEEP VEIN THROMBOSIS [None]
  - PAIN [None]
